FAERS Safety Report 10524889 (Version 2)
Quarter: 2015Q1

REPORT INFORMATION
  Report Type: Spontaneous
  Country: US (occurrence: None)
  Receive Date: 20141015
  Receipt Date: 20150220
  Transmission Date: 20150720
  Serious: No
  Sender: FDA-Public Use
  Company Number: 3005174370-2014-00029

PATIENT
  Sex: Male

DRUGS (1)
  1. PERIOMED [Suspect]
     Active Substance: STANNOUS FLUORIDE
     Dosage: ORAL RINSE
     Route: 061

REACTIONS (1)
  - Ageusia [None]
